FAERS Safety Report 6134928-1 (Version None)
Quarter: 2009Q1

REPORT INFORMATION
  Report Type: 
  Country: None (occurrence: None)
  Receive Date: 20090327
  Receipt Date: 20090318
  Transmission Date: 20090719
  Serious: Yes (Other)
  Sender: FDA-Public Use
  Company Number: US-WATSON-2009-01818

PATIENT

DRUGS (2)
  1. FERRLECIT [Suspect]
     Indication: RESTLESS LEGS SYNDROME
     Dosage: 100 MG, DURATION BETWEEN 30MINS TO 2HRS
     Route: 042
  2. FERRLECIT [Suspect]
     Dosage: 25 MG, TEST DOSE
     Route: 042

REACTIONS (3)
  - BACK PAIN [None]
  - CARDIO-RESPIRATORY ARREST [None]
  - RASH GENERALISED [None]
